FAERS Safety Report 13966716 (Version 1)
Quarter: 2017Q3

REPORT INFORMATION
  Report Type: Spontaneous
  Country: GB (occurrence: GB)
  Receive Date: 20170914
  Receipt Date: 20170914
  Transmission Date: 20171128
  Serious: Yes (Life-Threatening, Hospitalization)
  Sender: FDA-Public Use
  Company Number: GB-TORRENT-00015605

PATIENT
  Age: 43 Year
  Sex: Female

DRUGS (4)
  1. OLANZAPINE. [Suspect]
     Active Substance: OLANZAPINE
  2. MACROGOL 3350 [Concomitant]
     Active Substance: POLYETHYLENE GLYCOL 3350
  3. AMITRIPTYLINE [Suspect]
     Active Substance: AMITRIPTYLINE
  4. PROCYCLIDINE [Concomitant]
     Active Substance: PROCYCLIDINE

REACTIONS (3)
  - Confusional state [Unknown]
  - Hyponatraemia [Recovering/Resolving]
  - Seizure [Unknown]

NARRATIVE: CASE EVENT DATE: 20170820
